FAERS Safety Report 8757980 (Version 1)
Quarter: 2012Q4

REPORT INFORMATION
  Report Type: 
  Country: MX (occurrence: MX)
  Receive Date: 20120828
  Receipt Date: 20120828
  Transmission Date: 20130627
  Serious: Yes (Other)
  Sender: FDA-Public Use
  Company Number: PHHY2012MX073791

PATIENT
  Sex: Female

DRUGS (1)
  1. CO-DIOVAN [Suspect]
     Indication: HYPERTENSION
     Dosage: 1 DF (160/12.5 mg), UNK
     Dates: start: 201001, end: 201203

REACTIONS (3)
  - Hiatus hernia [None]
  - Blood pressure increased [Unknown]
  - Epistaxis [Unknown]
